FAERS Safety Report 12174478 (Version 1)
Quarter: 2016Q1

REPORT INFORMATION
  Report Type: Report from Study
  Country: US (occurrence: US)
  Receive Date: 20160312
  Receipt Date: 20160312
  Transmission Date: 20160526
  Serious: Yes (Other)
  Sender: FDA-Public Use
  Company Number: US-ACCORD-038680

PATIENT
  Age: 59 Year

DRUGS (4)
  1. CYTARABINE/CYTARABINE HYDROCHLORIDE/CYTARABINE OCFOSFATE [Concomitant]
     Indication: B-CELL TYPE ACUTE LEUKAEMIA
     Dosage: ALTERNATING THERAPY ON DAYS 2 AND 7 OF EACH HYPER-CVAD COURSE FOR A TOTAL OF 8 OR 12 DOSES
     Route: 037
     Dates: start: 20130608
  2. OFATUMUMAB [Concomitant]
     Active Substance: OFATUMUMAB
     Indication: B-CELL TYPE ACUTE LEUKAEMIA
     Dates: start: 20130608
  3. ARA-C (DEPOCYTE) [Concomitant]
     Indication: B-CELL TYPE ACUTE LEUKAEMIA
     Route: 037
     Dates: start: 20130614
  4. METHOTREXATE [Suspect]
     Active Substance: METHOTREXATE
     Indication: B-CELL TYPE ACUTE LEUKAEMIA
     Dosage: ALSO RECEIVED CYCLICAL ON 8-JUN-2013.?HYPER-CVAD REGIMEN
     Route: 037
     Dates: start: 20130610

REACTIONS (1)
  - Myelopathy [Not Recovered/Not Resolved]

NARRATIVE: CASE EVENT DATE: 20130615
